FAERS Safety Report 11092831 (Version 3)
Quarter: 2015Q2

REPORT INFORMATION
  Report Type: Spontaneous
  Country: TH (occurrence: TH)
  Receive Date: 20150506
  Receipt Date: 20150611
  Transmission Date: 20150821
  Serious: No
  Sender: FDA-Public Use
  Company Number: TH-JNJFOC-20150419861

PATIENT
  Age: 33 Year
  Sex: Female

DRUGS (4)
  1. OLANZAPINE. [Suspect]
     Active Substance: OLANZAPINE
     Indication: PSYCHOTIC DISORDER
     Dosage: 10 MG 1/2 TABLET
     Route: 048
     Dates: start: 20140905, end: 20150409
  2. INVEGA SUSTENNA [Suspect]
     Active Substance: PALIPERIDONE PALMITATE
     Indication: SCHIZOPHRENIA
     Dosage: SECOND DOSE
     Route: 030
     Dates: start: 20150409
  3. INVEGA SUSTENNA [Suspect]
     Active Substance: PALIPERIDONE PALMITATE
     Indication: SCHIZOPHRENIA
     Dosage: FIRST DOSE
     Route: 030
     Dates: start: 20150402
  4. INVEGA SUSTENNA [Suspect]
     Active Substance: PALIPERIDONE PALMITATE
     Indication: SCHIZOPHRENIA
     Dosage: MAINTENANCE DOSE
     Route: 030
     Dates: start: 20150514

REACTIONS (5)
  - Incorrect dose administered [Unknown]
  - Salivary hypersecretion [Unknown]
  - Torticollis [Recovered/Resolved]
  - Dystonia [Recovered/Resolved]
  - Hypokinesia [Unknown]

NARRATIVE: CASE EVENT DATE: 20150403
